FAERS Safety Report 6619880-4 (Version None)
Quarter: 2010Q1

REPORT INFORMATION
  Report Type: 
  Country: None (occurrence: None)
  Receive Date: 20100309
  Receipt Date: 20100225
  Transmission Date: 20100710
  Serious: Yes (Other)
  Sender: FDA-Public Use
  Company Number: US-BAYER-201012300BCC

PATIENT
  Age: 49 Year
  Sex: Male
  Weight: 84 kg

DRUGS (5)
  1. ALKA-SELTZER LIQUID GELS DAY TIME [Suspect]
     Indication: NASAL CONGESTION
     Dosage: DAY/NIGHT COMBO BOTTLE COUNT 20CT
     Route: 048
     Dates: start: 20100224
  2. ALKA-SELTZER LIQUID GELS NIGHT FORMULA [Suspect]
     Indication: NASAL CONGESTION
     Dosage: TOTAL DAILY DOSE: 2 DF  UNIT DOSE: 2 DF
     Route: 048
     Dates: start: 20100224
  3. ALKA-SELTZER LIQUID GELS NIGHT FORMULA [Suspect]
     Dosage: TOTAL DAILY DOSE: 2 DF  UNIT DOSE: 2 DF
     Route: 048
     Dates: start: 20100225
  4. WELLBUTRIN [Concomitant]
     Route: 065
  5. IBUPROFEN [Concomitant]
     Route: 065
     Dates: start: 20100225

REACTIONS (1)
  - CHEST DISCOMFORT [None]
